FAERS Safety Report 7283397-7 (Version None)
Quarter: 2011Q1

REPORT INFORMATION
  Report Type: 
  Country: None (occurrence: None)
  Receive Date: 20110209
  Receipt Date: 20100810
  Transmission Date: 20110831
  Serious: No
  Sender: FDA-Public Use
  Company Number: A0876798A

PATIENT
  Age: 50 Year
  Sex: Female

DRUGS (3)
  1. PAXIL [Suspect]
     Indication: DEPRESSION
     Route: 048
     Dates: start: 19950101
  2. ATENOLOL [Concomitant]
  3. SINUS MEDICATION [Concomitant]

REACTIONS (2)
  - WITHDRAWAL SYNDROME [None]
  - NEUROLOGICAL SYMPTOM [None]
